FAERS Safety Report 22013363 (Version 1)
Quarter: 2023Q1

REPORT INFORMATION
  Report Type: Spontaneous
  Country: AR (occurrence: AR)
  Receive Date: 20230220
  Receipt Date: 20230220
  Transmission Date: 20230418
  Serious: Yes (Life-Threatening, Hospitalization, Other)
  Sender: FDA-Public Use
  Company Number: AR-009507513-2302ARG006145

PATIENT
  Age: 9 Year
  Sex: Female

DRUGS (4)
  1. DAPTOMYCIN [Suspect]
     Active Substance: DAPTOMYCIN
     Dosage: UNK
     Route: 065
  2. VANCOMYCIN [Suspect]
     Active Substance: VANCOMYCIN
     Dosage: UNK
     Route: 065
  3. CLINDAMYCIN [Suspect]
     Active Substance: CLINDAMYCIN
     Dosage: UNK
     Route: 065
  4. CEFTAROLINE [Suspect]
     Active Substance: CEFTAROLINE
     Dosage: UNK
     Route: 065

REACTIONS (1)
  - Staphylococcal bacteraemia [Unknown]

NARRATIVE: CASE EVENT DATE: 20230130
